FAERS Safety Report 21660941 (Version 4)
Quarter: 2024Q3

REPORT INFORMATION
  Report Type: Spontaneous
  Country: BR (occurrence: BR)
  Receive Date: 20221130
  Receipt Date: 20240919
  Transmission Date: 20241017
  Serious: Yes (Other)
  Sender: CELLTRION
  Company Number: BR-CELLTRION INC.-2022BR020104

PATIENT

DRUGS (7)
  1. INFLIXIMAB [Suspect]
     Active Substance: INFLIXIMAB
     Indication: Ankylosing spondylitis
     Dosage: 5 AMPOULES EVERY 45 DAYS
     Route: 042
     Dates: start: 20230417
  2. INFLIXIMAB [Suspect]
     Active Substance: INFLIXIMAB
     Dosage: 5 AMPOULES EVERY 6 WEEKS
     Route: 042
  3. INFLIXIMAB [Suspect]
     Active Substance: INFLIXIMAB
     Indication: Ankylosing spondylitis
     Dosage: 5 AMPOULES EVERY 6 WEEKS
     Route: 042
     Dates: start: 20240822
  4. GLIFAGE [Concomitant]
     Active Substance: METFORMIN HYDROCHLORIDE
     Indication: Diabetes mellitus
     Dosage: 1 TABLET A DAY
     Route: 048
  5. SIMVASTATIN [Concomitant]
     Active Substance: SIMVASTATIN
     Dosage: 2 TABLETS A DAY
     Route: 048
  6. LOSARTAN [Concomitant]
     Active Substance: LOSARTAN\LOSARTAN POTASSIUM
     Indication: Hypertension
     Dosage: 1 TABLET A DAY
     Route: 048
  7. DESLORATADINE [Concomitant]
     Active Substance: DESLORATADINE
     Indication: Hypertension
     Dosage: 1 TABLET A DAY
     Route: 048

REACTIONS (8)
  - Surgery [Unknown]
  - Carpal tunnel syndrome [Unknown]
  - Neck pain [Recovered/Resolved]
  - Groin pain [Recovered/Resolved]
  - Back pain [Recovered/Resolved]
  - Intentional dose omission [Unknown]
  - Drug ineffective [Unknown]
  - Intentional product use issue [Unknown]
